FAERS Safety Report 10393664 (Version 2)
Quarter: 2014Q4

REPORT INFORMATION
  Report Type: Spontaneous
  Country: US (occurrence: US)
  Receive Date: 20140819
  Receipt Date: 20141001
  Transmission Date: 20150528
  Serious: Yes (Hospitalization, Other)
  Sender: FDA-Public Use
  Company Number: US-BAYER-2014-122048

PATIENT
  Sex: Female

DRUGS (3)
  1. CLIMARA [Suspect]
     Active Substance: ESTRADIOL
     Indication: HOT FLUSH
     Dosage: 1 DF, OW
     Dates: start: 1999, end: 201407
  2. CLIMARA [Suspect]
     Active Substance: ESTRADIOL
     Indication: MIGRAINE
  3. CLIMARA [Suspect]
     Active Substance: ESTRADIOL
     Indication: MOOD ALTERED

REACTIONS (17)
  - Application site erythema [None]
  - Rash papular [None]
  - Fibromyalgia [None]
  - Orthostatic hypertension [None]
  - Uterine disorder [None]
  - Cerebrovascular accident [None]
  - Venous stenosis [None]
  - Muscle spasms [None]
  - Constipation [None]
  - Adverse event [None]
  - Neck mass [None]
  - Application site irritation [None]
  - Application site rash [None]
  - Immune system disorder [None]
  - Antiphospholipid antibodies positive [None]
  - Sjogren^s syndrome [None]
  - Skin discolouration [None]

NARRATIVE: CASE EVENT DATE: 2012
